FAERS Safety Report 5566555-9 (Version None)
Quarter: 2007Q4

REPORT INFORMATION
  Report Type: 
  Country: None (occurrence: None)
  Receive Date: 20071219
  Receipt Date: 20071211
  Transmission Date: 20080405
  Serious: Yes (Other)
  Sender: FDA-Public Use
  Company Number: JP-JNJFOC-20071200869

PATIENT
  Sex: Female
  Weight: 60 kg

DRUGS (12)
  1. REMICADE [Suspect]
     Route: 042
  2. REMICADE [Suspect]
     Indication: RHEUMATOID ARTHRITIS
     Dosage: 5 ADDITIONAL INFUSIONS ON UNSPECIFIED DATES
     Route: 042
  3. RHEUMATREX [Concomitant]
     Indication: RHEUMATOID ARTHRITIS
     Route: 048
  4. PREDONINE [Concomitant]
     Route: 048
  5. VOLTAREN [Concomitant]
     Route: 054
  6. MUCOSTA [Concomitant]
     Route: 048
  7. CYTOTEC [Concomitant]
     Route: 048
  8. FOLIAMIN [Concomitant]
     Route: 048
  9. VOLTAREN [Concomitant]
     Route: 048
  10. LASIX [Concomitant]
     Route: 048
  11. VOLTAREN:TAP [Concomitant]
     Route: 048
  12. ADOFEED [Concomitant]

REACTIONS (3)
  - PARALYSIS [None]
  - POLYNEUROPATHY [None]
  - RADIAL NERVE PALSY [None]
